FAERS Safety Report 5308913-3 (Version None)
Quarter: 2007Q2

REPORT INFORMATION
  Report Type: 
  Country: None (occurrence: None)
  Receive Date: 20070426
  Receipt Date: 20070417
  Transmission Date: 20071010
  Serious: Yes (Hospitalization, Other)
  Sender: FDA-Public Use
  Company Number: DE-PFIZER INC-2007002801

PATIENT
  Sex: Male
  Weight: 75 kg

DRUGS (3)
  1. ATORVASTATIN CALCIUM [Suspect]
     Indication: PROPHYLAXIS
     Dosage: DAILY DOSE:40MG
     Route: 048
     Dates: start: 20060929, end: 20070201
  2. ATORVASTATIN CALCIUM [Suspect]
     Indication: BLOOD CHOLESTEROL INCREASED
  3. ACETYLSALICYLIC ACID SRT [Concomitant]
     Route: 048

REACTIONS (4)
  - CENTRAL NERVOUS SYSTEM LYMPHOMA [None]
  - DISTURBANCE IN ATTENTION [None]
  - LIPIDS ABNORMAL [None]
  - MEMORY IMPAIRMENT [None]
